FAERS Safety Report 5374928-2 (Version None)
Quarter: 2007Q2

REPORT INFORMATION
  Report Type: 
  Country: None (occurrence: None)
  Receive Date: 20070625
  Receipt Date: 20070516
  Transmission Date: 20071010
  Serious: Yes (Hospitalization)
  Sender: FDA-Public Use
  Company Number: 07P-163-0369261-00

PATIENT
  Age: 18 Year
  Sex: Female
  Weight: 72.5 kg

DRUGS (5)
  1. HUMIRA [Suspect]
     Indication: CROHN'S DISEASE
     Dosage: 160MG/ 80MG, SUBCUTANEOUS; 40 MG, 1 IN 2 WK, SUBCUTANEOUS
     Route: 058
     Dates: start: 20070423, end: 20070401
  2. HUMIRA [Suspect]
     Indication: CROHN'S DISEASE
     Dosage: 160MG/ 80MG, SUBCUTANEOUS; 40 MG, 1 IN 2 WK, SUBCUTANEOUS
     Route: 058
     Dates: start: 20070401
  3. TOPIRAMATE [Concomitant]
  4. CITALOPRAM HYDROBROMIDE [Concomitant]
  5. PREDNISONE [Concomitant]

REACTIONS (3)
  - CONDITION AGGRAVATED [None]
  - GASTRITIS [None]
  - OEDEMA PERIPHERAL [None]
